FAERS Safety Report 16912882 (Version 2)
Quarter: 2019Q4

REPORT INFORMATION
  Report Type: Report from Study
  Country: US (occurrence: US)
  Receive Date: 20191014
  Receipt Date: 20191029
  Transmission Date: 20200122
  Serious: Yes (Other)
  Sender: FDA-Public Use
  Company Number: US-TEVA-2019-US-1120514

PATIENT
  Sex: Female

DRUGS (1)
  1. COPAXONE [Suspect]
     Active Substance: GLATIRAMER ACETATE
     Dates: end: 20190407

REACTIONS (6)
  - Head injury [Unknown]
  - Arthralgia [Unknown]
  - Joint space narrowing [Unknown]
  - Loss of consciousness [Unknown]
  - Injection site indentation [Unknown]
  - Wrong technique in product usage process [Unknown]
